FAERS Safety Report 10173411 (Version 1)
Quarter: 2014Q2

REPORT INFORMATION
  Report Type: Spontaneous
  Country: US (occurrence: None)
  Receive Date: 20140416
  Receipt Date: 20140416
  Transmission Date: 20141212
  Serious: Yes (Hospitalization)
  Sender: FDA-Public Use
  Company Number: 163-POMAL-14013219

PATIENT
  Age: 71 Year
  Sex: Female

DRUGS (11)
  1. POMALYST (POMALIDOMIDE) (CAPSULES) [Suspect]
     Indication: PLASMA CELL MYELOMA
     Dosage: 21 IN 28 D
     Route: 048
     Dates: start: 201305
  2. LASIX (FUROSEMIDE) [Concomitant]
  3. DIOVAN (VALSARTAN) [Concomitant]
  4. ALPRAZOLAM  (ALPRAZOLAM) [Concomitant]
  5. LEVOTHYROXINE (LEVOTHYROXINE) [Concomitant]
  6. WARFARIN SODIUIM (WARFARIN SODIUM) [Concomitant]
  7. HYDROCODONE W/ACETAMINOPHEN (VICODIN) [Concomitant]
  8. METOPROLOL SUCCINATE (METOPROLOL SUCCINATE) [Concomitant]
  9. ASPIRIN (ACETYLSALICYLIC ACID) [Concomitant]
  10. VITAMIN D3 (COLECALCIFEROL) [Concomitant]
  11. POTASSIUM CL (POTASSIUM CHLORIDE) [Concomitant]

REACTIONS (1)
  - Atrial fibrillation [None]
